FAERS Safety Report 5818402-5 (Version None)
Quarter: 2008Q3

REPORT INFORMATION
  Report Type: 
  Country: None (occurrence: None)
  Receive Date: 20080718
  Receipt Date: 20080715
  Transmission Date: 20090109
  Serious: Yes (Death)
  Sender: FDA-Public Use
  Company Number: 2008-02595

PATIENT
  Sex: Female

DRUGS (1)
  1. VELCADE [Suspect]
     Indication: MULTIPLE MYELOMA
     Dosage: INTRAVENOUS
     Route: 042
     Dates: start: 20080602, end: 20080601

REACTIONS (1)
  - HYPERVISCOSITY SYNDROME [None]
